FAERS Safety Report 9523371 (Version 2)
Quarter: 2014Q1

REPORT INFORMATION
  Report Type: Spontaneous
  Country: DK (occurrence: CA)
  Receive Date: 20130913
  Receipt Date: 20140122
  Transmission Date: 20141002
  Serious: Yes (Hospitalization, Other)
  Sender: FDA-Public Use
  Company Number: CA-FRI-1000048783

PATIENT
  Age: 14 Year
  Sex: Female
  Weight: 73 kg

DRUGS (2)
  1. ESCITALOPRAM [Suspect]
     Indication: DEPRESSION
     Route: 048
     Dates: start: 201212, end: 201212
  2. TETRACYCLINE [Suspect]
     Indication: ACNE
     Route: 048
     Dates: start: 201206, end: 201212

REACTIONS (5)
  - Intracranial pressure increased [Unknown]
  - Vision blurred [Unknown]
  - Papilloedema [Unknown]
  - Headache [Unknown]
  - Off label use [Unknown]
